FAERS Safety Report 6004812-2 (Version None)
Quarter: 2008Q4

REPORT INFORMATION
  Report Type: 
  Country: None (occurrence: None)
  Receive Date: 20081216
  Receipt Date: 20081205
  Transmission Date: 20090506
  Serious: Yes (Death, Hospitalization, Other)
  Sender: FDA-Public Use
  Company Number: US-ELI_LILLY_AND_COMPANY-US200809003560

PATIENT
  Sex: Female
  Weight: 63.578 kg

DRUGS (15)
  1. CYMBALTA [Suspect]
     Indication: NEUROPATHY PERIPHERAL
     Dosage: 30 MG, DAILY (1/D)
     Dates: start: 20080501
  2. PREDNISONE TAB [Concomitant]
     Indication: RHEUMATOID ARTHRITIS
     Dosage: 1 D/F, UNK
     Route: 048
  3. PREDNISONE TAB [Concomitant]
     Dosage: 2 MG, DAILY (1/D)
     Route: 048
  4. PAXIL [Concomitant]
     Dosage: 10 MG, OTHER
     Route: 048
  5. LASIX [Concomitant]
     Dosage: 20 MG, DAILY (1/D)
     Route: 048
  6. ALDACTONE [Concomitant]
     Dosage: 25 MG, DAILY (1/D)
     Route: 048
  7. CEPHULAC [Concomitant]
     Dosage: 20 G, 2/D
     Route: 048
  8. CORGARD [Concomitant]
     Dosage: 40 MG, DAILY (1/D)
     Route: 048
  9. METHOTREXATE [Concomitant]
     Dosage: 12.5 MG, WEEKLY (1/W)
     Dates: start: 19880101
  10. LEFLUNOMIDE [Concomitant]
     Dosage: 20 MG, OTHER
     Dates: start: 20060101, end: 20080101
  11. ACE INHIBITOR NOS [Concomitant]
  12. ACTONEL [Concomitant]
     Dosage: 35 MG, WEEKLY (1/W)
  13. FLORINEF [Concomitant]
     Dosage: 0.1 MG, 2/D
  14. LISINOPRIL [Concomitant]
     Dosage: 2.5 MG, DAILY (1/D)
  15. PREGABALIN [Concomitant]
     Dosage: 75 MG, 3/D

REACTIONS (32)
  - ABDOMINAL PAIN [None]
  - ANAEMIA [None]
  - ANXIETY [None]
  - ASCITES [None]
  - CANDIDIASIS [None]
  - CARDIAC ARREST [None]
  - CHILLS [None]
  - COAGULOPATHY [None]
  - DIARRHOEA [None]
  - DIASTOLIC DYSFUNCTION [None]
  - ENCEPHALOPATHY [None]
  - FATIGUE [None]
  - FEELING ABNORMAL [None]
  - HEPATIC CIRRHOSIS [None]
  - HEPATITIS [None]
  - HYPERTENSION [None]
  - HYPOXIA [None]
  - LIVER DISORDER [None]
  - MULTI-ORGAN FAILURE [None]
  - MUSCULOSKELETAL PAIN [None]
  - ODYNOPHAGIA [None]
  - OEDEMA PERIPHERAL [None]
  - OESOPHAGITIS ULCERATIVE [None]
  - ORTHOSTATIC HYPOTENSION [None]
  - PLEURAL EFFUSION [None]
  - PNEUMONIA ASPIRATION [None]
  - PORTAL HYPERTENSION [None]
  - RENAL FAILURE [None]
  - RESPIRATORY FAILURE [None]
  - SKIN CANDIDA [None]
  - TREMOR [None]
  - VOMITING [None]
